FAERS Safety Report 17820115 (Version 1)
Quarter: 2020Q2

REPORT INFORMATION
  Report Type: Spontaneous
  Country: ES (occurrence: ES)
  Receive Date: 20200525
  Receipt Date: 20200525
  Transmission Date: 20200714
  Serious: Yes (Life-Threatening, Hospitalization)
  Sender: FDA-Public Use
  Company Number: ES-ROCHE-2605168

PATIENT
  Age: 54 Year
  Sex: Female

DRUGS (8)
  1. GABAPENTINA [Interacting]
     Active Substance: GABAPENTIN
     Indication: SUICIDE ATTEMPT
     Route: 048
     Dates: start: 20200303, end: 20200303
  2. CLOTIAPINA [Interacting]
     Active Substance: CLOTHIAPINE
     Indication: SUICIDE ATTEMPT
     Route: 048
     Dates: start: 20200303, end: 20200303
  3. DIAZEPAM. [Suspect]
     Active Substance: DIAZEPAM
     Indication: SUICIDE ATTEMPT
     Route: 048
     Dates: start: 20200303, end: 20200303
  4. CLONAZEPAM. [Interacting]
     Active Substance: CLONAZEPAM
     Indication: SUICIDE ATTEMPT
     Route: 048
     Dates: start: 20200303, end: 20200303
  5. BUPROPION HYDROCHLORIDE. [Interacting]
     Active Substance: BUPROPION HYDROCHLORIDE
     Indication: SUICIDE ATTEMPT
     Route: 048
     Dates: start: 20200303, end: 20200303
  6. QUETIAPINA [QUETIAPINE] [Interacting]
     Active Substance: QUETIAPINE
     Indication: SUICIDE ATTEMPT
     Route: 048
     Dates: start: 20200303, end: 20200303
  7. ZONISAMIDE. [Interacting]
     Active Substance: ZONISAMIDE
     Indication: SUICIDE ATTEMPT
     Route: 048
     Dates: start: 20200303, end: 20200303
  8. PROPRANOLOL [Interacting]
     Active Substance: PROPRANOLOL HYDROCHLORIDE
     Indication: SUICIDE ATTEMPT
     Route: 048
     Dates: start: 20200303, end: 20200303

REACTIONS (2)
  - Coma [Recovered/Resolved]
  - Drug interaction [Unknown]

NARRATIVE: CASE EVENT DATE: 20200303
